FAERS Safety Report 5331611-7 (Version None)
Quarter: 2007Q2

REPORT INFORMATION
  Report Type: 
  Country: None (occurrence: None)
  Receive Date: 20070516
  Receipt Date: 20070507
  Transmission Date: 20071010
  Serious: Yes (Other)
  Sender: FDA-Public Use
  Company Number: 163-21880-07050117

PATIENT
  Age: 73 Year
  Sex: Male

DRUGS (4)
  1. REVLIMID [Suspect]
     Indication: MULTIPLE MYELOMA
     Dosage: 10 MG, 1 IN 1 D, ORAL
     Route: 048
     Dates: start: 20070427
  2. ALKERAN [Suspect]
     Indication: MULTIPLE MYELOMA
     Dosage: 25 MG, UNKNOWN
     Dates: start: 20070427
  3. PREDNISONE TAB [Suspect]
     Indication: MULTIPLE MYELOMA
     Dosage: 100 MG, UNKNOWN
     Dates: start: 20070427
  4. ISOSORBIDE (ISOSORBIDE) [Concomitant]

REACTIONS (3)
  - ANGINA PECTORIS [None]
  - HEART RATE IRREGULAR [None]
  - PALPITATIONS [None]
